FAERS Safety Report 7714798-8 (Version None)
Quarter: 2011Q3

REPORT INFORMATION
  Report Type: 
  Country: None (occurrence: None)
  Receive Date: 20110829
  Receipt Date: 20110815
  Transmission Date: 20111222
  Serious: Yes (Other)
  Sender: FDA-Public Use
  Company Number: NL-MYLANLABS-2011S1017375

PATIENT
  Sex: Male

DRUGS (1)
  1. PROPRANOLOL [Suspect]
     Indication: HAEMANGIOMA CONGENITAL
     Dosage: 1 MG/KG/DAY (STARTING AND MAXIMUM DOSAGE)
     Route: 065

REACTIONS (4)
  - BRONCHIAL HYPERREACTIVITY [None]
  - SLEEP DISORDER [None]
  - PERIPHERAL COLDNESS [None]
  - DIARRHOEA [None]
